FAERS Safety Report 13410007 (Version 1)
Quarter: 2017Q2

REPORT INFORMATION
  Report Type: Spontaneous
  Country: FR (occurrence: FR)
  Receive Date: 20170406
  Receipt Date: 20170406
  Transmission Date: 20170830
  Serious: Yes (Hospitalization)
  Sender: FDA-Public Use
  Company Number: FR-ROCHE-1914305

PATIENT
  Age: 47 Year
  Sex: Female

DRUGS (9)
  1. PEGASYS [Suspect]
     Active Substance: PEGINTERFERON ALFA-2A
     Indication: BEHCET^S SYNDROME
     Route: 058
     Dates: start: 201608, end: 201701
  2. ROFERON-A [Suspect]
     Active Substance: INTERFERON ALFA-2A
     Indication: BEHCET^S SYNDROME
     Route: 058
     Dates: start: 201603, end: 201608
  3. COLCHIMAX (FRANCE) [Suspect]
     Active Substance: COLCHICINE\OPIUM, POWDERED\TIEMONIUM
     Indication: BEHCET^S SYNDROME
     Route: 048
     Dates: start: 2007, end: 2016
  4. SERTRALINE [Concomitant]
     Active Substance: SERTRALINE HYDROCHLORIDE
     Dosage: BASE
     Route: 048
  5. ROVAMYCINE [Concomitant]
     Active Substance: SPIRAMYCIN
     Route: 048
  6. HUMIRA [Suspect]
     Active Substance: ADALIMUMAB
     Indication: BEHCET^S SYNDROME
     Route: 058
     Dates: start: 2011, end: 201304
  7. SIMPONI [Suspect]
     Active Substance: GOLIMUMAB
     Indication: PRODUCT USED FOR UNKNOWN INDICATION
     Route: 058
     Dates: start: 201404, end: 201508
  8. METHOTREXATE. [Suspect]
     Active Substance: METHOTREXATE
     Indication: BEHCET^S SYNDROME
     Route: 065
     Dates: start: 2007, end: 2015
  9. REMICADE [Suspect]
     Active Substance: INFLIXIMAB
     Indication: BEHCET^S SYNDROME
     Dosage: 100 MG
     Route: 041
     Dates: start: 201304, end: 201404

REACTIONS (1)
  - Natural killer-cell lymphoblastic lymphoma [Not Recovered/Not Resolved]

NARRATIVE: CASE EVENT DATE: 201701
